FAERS Safety Report 25314147 (Version 1)
Quarter: 2025Q2

REPORT INFORMATION
  Report Type: Spontaneous
  Country: US (occurrence: None)
  Receive Date: 20250514
  Receipt Date: 20250514
  Transmission Date: 20250717
  Serious: No
  Sender: FDA-CTU
  Company Number: None

PATIENT
  Age: 77 Year
  Sex: Male

DRUGS (2)
  1. MYCOPHENOLIC ACID [Suspect]
     Active Substance: MYCOPHENOLIC ACID
     Indication: Lung transplant
     Dates: start: 20200115
  2. PROGRAF [Concomitant]
     Active Substance: TACROLIMUS

REACTIONS (1)
  - Influenza [None]

NARRATIVE: CASE EVENT DATE: 20250501
